FAERS Safety Report 8062970-2 (Version None)
Quarter: 2011Q4

REPORT INFORMATION
  Report Type: 
  Country: None (occurrence: None)
  Receive Date: 20111221
  Receipt Date: 20110609
  Transmission Date: 20120403
  Serious: Yes (Other)
  Sender: FDA-Public Use
  Company Number: PHHY2011US51814

PATIENT
  Age: 82 Year
  Sex: Male

DRUGS (4)
  1. MAGNESIUM (MAGNESIUM) [Concomitant]
  2. VIDAZA [Concomitant]
  3. FOLIC ACID B12 (FOLIC ACID) [Concomitant]
  4. EXJADE [Suspect]
     Indication: BLOOD IRON INCREASED
     Dosage: 3000 MG, QD
     Route: 048
     Dates: start: 20110201, end: 20110601

REACTIONS (3)
  - BLOOD BILIRUBIN INCREASED [None]
  - BLOOD CREATININE INCREASED [None]
  - HEPATIC ENZYME INCREASED [None]
